FAERS Safety Report 14623495 (Version 3)
Quarter: 2018Q2

REPORT INFORMATION
  Report Type: Spontaneous
  Country: ES (occurrence: ES)
  Receive Date: 20180312
  Receipt Date: 20180424
  Transmission Date: 20180711
  Serious: Yes (Disabling, Other)
  Sender: FDA-Public Use
  Company Number: ES-AUROBINDO-AUR-APL-2018-013106

PATIENT
  Age: 49 Year
  Sex: Male
  Weight: 70 kg

DRUGS (18)
  1. LEDIPASVIR W/SOFOSBUVIR [Concomitant]
     Active Substance: LEDIPASVIR\SOFOSBUVIR
     Indication: CHRONIC HEPATITIS C
  2. ABACAVIR. [Concomitant]
     Active Substance: ABACAVIR
     Indication: HIV INFECTION
     Dosage: ()
  3. SIMEPREVIR [Suspect]
     Active Substance: SIMEPREVIR
     Dosage: UNK ()
     Route: 065
  4. LAMIVUDINE. [Concomitant]
     Active Substance: LAMIVUDINE
     Indication: HIV INFECTION
     Dosage: ()
  5. ETRAVIRINE [Concomitant]
     Active Substance: ETRAVIRINE
     Indication: HIV INFECTION
     Dosage: ()
  6. SOFOSBUVIR [Suspect]
     Active Substance: SOFOSBUVIR
     Indication: CHRONIC HEPATITIS C
     Dosage: ()
     Route: 065
     Dates: start: 20150501
  7. RALTEGRAVIR. [Concomitant]
     Active Substance: RALTEGRAVIR
     Indication: HIV INFECTION
     Dosage: ()
  8. RIBAVIRIN. [Suspect]
     Active Substance: RIBAVIRIN
     Indication: CHRONIC HEPATITIS C
     Dosage: ()
     Route: 065
     Dates: start: 20150501
  9. RIBAVIRIN. [Suspect]
     Active Substance: RIBAVIRIN
     Indication: HIV INFECTION
     Dosage: UNK ()
     Route: 048
     Dates: start: 201505
  10. RIBAVIRIN. [Suspect]
     Active Substance: RIBAVIRIN
     Dosage: ()
  11. LAMIVUDINE. [Concomitant]
     Active Substance: LAMIVUDINE
     Dosage: DOSAGE FORM: UNSPECIFIED ()
     Route: 065
  12. SIMEPREVIR [Suspect]
     Active Substance: SIMEPREVIR
     Dosage: UNK ()
     Route: 065
  13. RALTEGRAVIR. [Concomitant]
     Active Substance: RALTEGRAVIR
     Dosage: DOSAGE FORM: UNSPECIFIED ()
     Route: 065
  14. SIMEPREVIR [Suspect]
     Active Substance: SIMEPREVIR
     Indication: CHRONIC HEPATITIS C
     Dosage: ()
     Route: 065
     Dates: start: 20150501
  15. SIMEPREVIR [Suspect]
     Active Substance: SIMEPREVIR
     Indication: HIV INFECTION
     Dosage: UNK ()
     Route: 065
     Dates: start: 201505
  16. SIMEPREVIR [Suspect]
     Active Substance: SIMEPREVIR
     Dosage: UNK ()
     Route: 065
  17. ABACAVIR. [Concomitant]
     Active Substance: ABACAVIR
     Dosage: DOSAGE FORM: UNSPECIFIED ()
     Route: 065
  18. SIMEPREVIR [Suspect]
     Active Substance: SIMEPREVIR
     Dosage: UNK ()
     Route: 065

REACTIONS (2)
  - Visual acuity reduced [Recovering/Resolving]
  - Choroiditis [Recovering/Resolving]

NARRATIVE: CASE EVENT DATE: 201507
